FAERS Safety Report 6904157-X (Version None)
Quarter: 2010Q3

REPORT INFORMATION
  Report Type: 
  Country: None (occurrence: None)
  Receive Date: 20100804
  Receipt Date: 20090319
  Transmission Date: 20110219
  Serious: No
  Sender: FDA-Public Use
  Company Number: US-PFIZER INC-2008161057

PATIENT
  Sex: Female
  Weight: 56.7 kg

DRUGS (3)
  1. LYRICA [Suspect]
     Indication: NEUROPATHY PERIPHERAL
     Dosage: 50 MG, 2X/DAY
     Route: 048
     Dates: start: 20081015, end: 20081101
  2. PROMETRIUM [Concomitant]
     Dosage: UNK
     Route: 048
  3. ESTRADIOL [Concomitant]
     Dosage: UNK
     Route: 048

REACTIONS (2)
  - JOINT SWELLING [None]
  - WEIGHT INCREASED [None]
